FAERS Safety Report 11148703 (Version 1)
Quarter: 2015Q2

REPORT INFORMATION
  Report Type: Spontaneous
  Country: FR (occurrence: FR)
  Receive Date: 20150529
  Receipt Date: 20150529
  Transmission Date: 20150821
  Serious: Yes (Hospitalization)
  Sender: FDA-Public Use
  Company Number: FR-SA-2015SA005431

PATIENT
  Age: 64 Year
  Sex: Male

DRUGS (12)
  1. NEURONTIN [Interacting]
     Active Substance: GABAPENTIN
     Indication: NEURALGIA
     Route: 065
     Dates: start: 201412
  2. ELIQUIS [Interacting]
     Active Substance: APIXABAN
     Indication: ATRIAL FIBRILLATION
     Route: 048
     Dates: start: 20141006
  3. NEURONTIN [Interacting]
     Active Substance: GABAPENTIN
     Indication: PAIN
     Dosage: DURATION: MORE THAN 2 YEARS
     Route: 048
  4. NEURONTIN [Interacting]
     Active Substance: GABAPENTIN
     Indication: PAIN
     Route: 065
     Dates: start: 20141006
  5. NEURONTIN [Interacting]
     Active Substance: GABAPENTIN
     Indication: NEURALGIA
     Dosage: DURATION: MORE THAN 2 YEARS
     Route: 048
  6. KARDEGIC [Concomitant]
     Active Substance: ASPIRIN LYSINE
     Dosage: 75?SACHET
     Route: 048
     Dates: end: 20141005
  7. NEURONTIN [Interacting]
     Active Substance: GABAPENTIN
     Indication: PAIN
     Route: 065
     Dates: start: 201412
  8. METFORMIN [Concomitant]
     Active Substance: METFORMIN HYDROCHLORIDE
     Dates: start: 201407, end: 20141006
  9. NEURONTIN [Interacting]
     Active Substance: GABAPENTIN
     Indication: NEURALGIA
     Route: 065
     Dates: start: 20141006
  10. APROVEL [Suspect]
     Active Substance: IRBESARTAN
     Indication: ATRIAL FIBRILLATION
     Route: 065
     Dates: start: 20141006
  11. ELIQUIS [Interacting]
     Active Substance: APIXABAN
     Indication: ATRIAL FIBRILLATION
     Route: 065
     Dates: start: 201502
  12. TENORMIN [Concomitant]
     Active Substance: ATENOLOL
     Dosage: 50?STARTED FOR MORE THAN 10 YEARS
     Route: 048

REACTIONS (8)
  - Drug interaction [Unknown]
  - Gastrointestinal disorder [Not Recovered/Not Resolved]
  - Abdominal pain upper [Recovered/Resolved]
  - Faeces discoloured [Not Recovered/Not Resolved]
  - Atrial fibrillation [Unknown]
  - Visual impairment [Unknown]
  - Poor quality sleep [Not Recovered/Not Resolved]
  - Hepatic siderosis [Not Recovered/Not Resolved]

NARRATIVE: CASE EVENT DATE: 201410
